FAERS Safety Report 6898486-6 (Version None)
Quarter: 2010Q3

REPORT INFORMATION
  Report Type: 
  Country: None (occurrence: None)
  Receive Date: 20100802
  Receipt Date: 20071018
  Transmission Date: 20110219
  Serious: No
  Sender: FDA-Public Use
  Company Number: US-PFIZER INC-2007088640

PATIENT
  Sex: Female
  Weight: 72.727 kg

DRUGS (9)
  1. LYRICA [Suspect]
     Indication: HYPOAESTHESIA
     Dates: start: 20070901
  2. LYRICA [Suspect]
     Indication: PAIN
  3. CYMBALTA [Concomitant]
  4. ADVIL LIQUI-GELS [Concomitant]
  5. LIDODERM [Concomitant]
     Route: 061
  6. TYLENOL [Concomitant]
  7. ALL OTHER THERAPEUTIC PRODUCTS [Concomitant]
  8. MOTRIN [Concomitant]
  9. TOPICAL PRODUCTS FOR JOINT AND MUSCULAR PAIN [Concomitant]
     Indication: PAIN
     Route: 061

REACTIONS (1)
  - DRUG SCREEN FALSE POSITIVE [None]
